FAERS Safety Report 5613978-5 (Version None)
Quarter: 2008Q2

REPORT INFORMATION
  Report Type: 
  Country: None (occurrence: None)
  Receive Date: 20080205
  Receipt Date: 20080130
  Transmission Date: 20081010
  Serious: Yes (Other)
  Sender: FDA-Public Use
  Company Number: JP-ASTRAZENECA-2007AP08070

PATIENT
  Age: 13576 Day
  Sex: Female
  Weight: 48 kg

DRUGS (11)
  1. ANAPEINE INJECTION [Suspect]
     Indication: EPIDURAL ANAESTHESIA
     Route: 008
     Dates: start: 20071214, end: 20071214
  2. XYLOCAINE [Suspect]
     Indication: EPIDURAL ANAESTHESIA
     Dosage: TEST DOSE
     Route: 008
     Dates: start: 20071214, end: 20071214
  3. XYLOCAINE [Suspect]
     Indication: INFILTRATION ANAESTHESIA
     Dosage: TEST DOSE
     Route: 008
     Dates: start: 20071214, end: 20071214
  4. XYLOCAINE [Suspect]
     Route: 058
     Dates: start: 20071214, end: 20071214
  5. XYLOCAINE [Suspect]
     Route: 058
     Dates: start: 20071214, end: 20071214
  6. LACTEC [Concomitant]
     Route: 041
     Dates: start: 20071213, end: 20071214
  7. CLARITHROMYCIN [Concomitant]
     Indication: UPPER RESPIRATORY TRACT INFECTION
     Route: 048
     Dates: end: 20071213
  8. PL [Concomitant]
     Indication: UPPER RESPIRATORY TRACT INFECTION
     Route: 048
     Dates: end: 20071213
  9. MUCODYNE [Concomitant]
     Indication: UPPER RESPIRATORY TRACT INFECTION
     Route: 048
     Dates: end: 20071213
  10. RESPLEN [Concomitant]
     Indication: UPPER RESPIRATORY TRACT INFECTION
     Route: 048
     Dates: end: 20071213
  11. OMEPRAL TABLETS [Concomitant]
     Indication: GASTRIC CANCER
     Route: 048
     Dates: end: 20071213

REACTIONS (1)
  - CLONIC CONVULSION [None]
